FAERS Safety Report 6400107-3 (Version None)
Quarter: 2009Q4

REPORT INFORMATION
  Report Type: 
  Country: None (occurrence: None)
  Receive Date: 20091008
  Receipt Date: 20091008
  Transmission Date: 20100525
  Serious: No
  Sender: FDA-Public Use
  Company Number: None

PATIENT
  Age: 58 Year
  Sex: Female
  Weight: 76 kg

DRUGS (1)
  1. CETACAINE [Suspect]
     Indication: THERAPEUTIC PROCEDURE
     Dosage: 1 SPRAY ONCE INHAL
     Dates: start: 20091006, end: 20091006

REACTIONS (4)
  - ASTHMA [None]
  - BRONCHOSPASM [None]
  - PROCEDURAL COMPLICATION [None]
  - TACHYCARDIA [None]
